FAERS Safety Report 4969090-1 (Version None)
Quarter: 2006Q2

REPORT INFORMATION
  Report Type: 
  Country: None (occurrence: None)
  Receive Date: 20060411
  Receipt Date: 20060404
  Transmission Date: 20061013
  Serious: Yes (Other)
  Sender: FDA-Public Use
  Company Number: US-BRISTOL-MYERS SQUIBB COMPANY-13336698

PATIENT
  Age: 64 Year
  Sex: Female

DRUGS (11)
  1. ESTRACE [Suspect]
     Indication: MENOPAUSAL SYMPTOMS
  2. PREMARIN [Suspect]
     Indication: MENOPAUSAL SYMPTOMS
  3. OGEN [Suspect]
     Indication: MENOPAUSAL SYMPTOMS
  4. PROVERA [Suspect]
     Indication: MENOPAUSAL SYMPTOMS
  5. ESTRATEST [Suspect]
     Indication: MENOPAUSAL SYMPTOMS
  6. MEDROXYPROGESTERONE [Suspect]
     Indication: MENOPAUSAL SYMPTOMS
  7. ACTIVELLA [Suspect]
     Indication: MENOPAUSAL SYMPTOMS
  8. PREMPRO [Suspect]
     Indication: MENOPAUSAL SYMPTOMS
  9. MENEST [Suspect]
     Indication: MENOPAUSAL SYMPTOMS
  10. CLIMARA [Suspect]
     Indication: MENOPAUSAL SYMPTOMS
  11. ESTRATAB [Suspect]
     Indication: MENOPAUSAL SYMPTOMS

REACTIONS (1)
  - BREAST CANCER [None]
